FAERS Safety Report 21623508 (Version 1)
Quarter: 2022Q4

REPORT INFORMATION
  Report Type: Spontaneous
  Country: CN (occurrence: CN)
  Receive Date: 20221121
  Receipt Date: 20221121
  Transmission Date: 20230113
  Serious: Yes (Life-Threatening, Other)
  Sender: FDA-Public Use
  Company Number: CN-PFIZER INC-PV202200106103

PATIENT
  Age: 45 Year
  Sex: Female
  Weight: 75 kg

DRUGS (2)
  1. PALBOCICLIB [Suspect]
     Active Substance: PALBOCICLIB
     Dosage: UNK
  2. IOPROMIDE [Suspect]
     Active Substance: IOPROMIDE
     Indication: Imaging procedure
     Dosage: 80 ML, 1X/DAY
     Route: 041
     Dates: start: 20221115, end: 20221115

REACTIONS (4)
  - Syncope [Recovering/Resolving]
  - Eyelid oedema [Recovering/Resolving]
  - Nausea [Recovering/Resolving]
  - Hypotension [Recovering/Resolving]

NARRATIVE: CASE EVENT DATE: 20221115
